FAERS Safety Report 5616464-1 (Version None)
Quarter: 2008Q1

REPORT INFORMATION
  Report Type: 
  Country: None (occurrence: None)
  Receive Date: 20080207
  Receipt Date: 20080107
  Transmission Date: 20080703
  Serious: No
  Sender: FDA-Public Use
  Company Number: US-BAYER-200810604NA

PATIENT
  Age: 4 Year
  Sex: Male

DRUGS (1)
  1. ANGELIQ [Suspect]
     Route: 048
     Dates: start: 20080107, end: 20080107

REACTIONS (1)
  - ACCIDENTAL EXPOSURE [None]
